FAERS Safety Report 13208027 (Version 2)
Quarter: 2017Q1

REPORT INFORMATION
  Report Type: Spontaneous
  Country: JP (occurrence: JP)
  Receive Date: 20170209
  Receipt Date: 20170303
  Transmission Date: 20170428
  Serious: Yes (Other)
  Sender: FDA-Public Use
  Company Number: JP-BIOGEN-2017BI00353364

PATIENT
  Age: 76 Year
  Sex: Male

DRUGS (4)
  1. DACARBAZINE. [Suspect]
     Active Substance: DACARBAZINE
     Indication: MALIGNANT MELANOMA STAGE III
     Route: 065
  2. VINCRISTINE [Suspect]
     Active Substance: VINCRISTINE
     Indication: MALIGNANT MELANOMA STAGE III
     Route: 065
  3. NIMUSTINE [Suspect]
     Active Substance: NIMUSTINE
     Indication: MALIGNANT MELANOMA STAGE III
     Route: 065
  4. AVONEX [Suspect]
     Active Substance: INTERFERON BETA-1A
     Indication: MALIGNANT MELANOMA STAGE III
     Route: 030

REACTIONS (2)
  - Metastases to lymph nodes [Unknown]
  - Metastases to skin [Unknown]
